FAERS Safety Report 24060120 (Version 2)
Quarter: 2024Q3

REPORT INFORMATION
  Report Type: Spontaneous
  Country: LK (occurrence: LK)
  Receive Date: 20240708
  Receipt Date: 20240715
  Transmission Date: 20241017
  Serious: Yes (Hospitalization, Other)
  Sender: PERRIGO
  Company Number: LK-PERRIGO-24LK006281

PATIENT
  Age: 67 Year
  Sex: Male

DRUGS (3)
  1. OMEPRAZOLE MAGNESIUM [Suspect]
     Active Substance: OMEPRAZOLE MAGNESIUM
     Indication: Dyspepsia
     Dosage: OVER-THE-COUNTER, UNKNOWN
     Route: 048
  2. CORIANDER OIL [Suspect]
     Active Substance: CORIANDER OIL
     Indication: Phytotherapy
     Dosage: UNKNOWN, UNKNOWN
     Route: 048
  3. GINGER [Suspect]
     Active Substance: GINGER
     Indication: Phytotherapy
     Dosage: UNKNOWN, UNKNOWN
     Route: 048

REACTIONS (3)
  - Insulin autoimmune syndrome [Recovering/Resolving]
  - Syncope [Recovering/Resolving]
  - Hypoglycaemia [Recovering/Resolving]
